FAERS Safety Report 18976079 (Version 3)
Quarter: 2021Q2

REPORT INFORMATION
  Report Type: Report from Study
  Country: CA (occurrence: CA)
  Receive Date: 20210306
  Receipt Date: 20210415
  Transmission Date: 20210717
  Serious: No
  Sender: FDA-Public Use
  Company Number: CA-JNJFOC-20210242462

PATIENT
  Age: 74 Year
  Sex: Male

DRUGS (2)
  1. STELARA [Suspect]
     Active Substance: USTEKINUMAB
     Indication: PSORIASIS
     Route: 058
     Dates: start: 20151204
  2. STELARA [Suspect]
     Active Substance: USTEKINUMAB

REACTIONS (3)
  - Needle issue [Unknown]
  - Incorrect dose administered [Recovering/Resolving]
  - Drug delivery system malfunction [Unknown]

NARRATIVE: CASE EVENT DATE: 20210223
